FAERS Safety Report 15191603 (Version 1)
Quarter: 2018Q3

REPORT INFORMATION
  Report Type: Spontaneous
  Country: DE (occurrence: DE)
  Receive Date: 20180724
  Receipt Date: 20180724
  Transmission Date: 20181010
  Serious: Yes (Other)
  Sender: FDA-Public Use
  Company Number: DE-UCBSA-2018032172

PATIENT
  Age: 42 Year
  Sex: Male
  Weight: 65 kg

DRUGS (13)
  1. MIRTAZAPIN [Suspect]
     Active Substance: MIRTAZAPINE
     Dosage: 15 MG, ONCE DAILY (QD) (0?0?1)
     Route: 048
  2. BRIVIACT [Suspect]
     Active Substance: BRIVARACETAM
     Indication: PRODUCT USED FOR UNKNOWN INDICATION
     Dosage: 150 MG, TOTAL
     Route: 048
     Dates: start: 20180629, end: 20180629
  3. RISPERIDON [Suspect]
     Active Substance: RISPERIDONE
     Indication: PRODUCT USED FOR UNKNOWN INDICATION
  4. PRIMIDON HOLSTEN [Suspect]
     Active Substance: PRIMIDONE
     Indication: PRODUCT USED FOR UNKNOWN INDICATION
  5. MELPERON [Suspect]
     Active Substance: MELPERONE
     Indication: PRODUCT USED FOR UNKNOWN INDICATION
     Dosage: 200 MG, 2X/DAY (BID) (0?1?1)
     Route: 048
  6. VALPRO BETA [Suspect]
     Active Substance: VALPROATE SODIUM
     Indication: PRODUCT USED FOR UNKNOWN INDICATION
  7. PRIMIDON HOLSTEN [Suspect]
     Active Substance: PRIMIDONE
     Dosage: 250 MG, TOTAL
     Route: 048
     Dates: start: 20180629, end: 20180629
  8. OXCARBAZEPINE. [Suspect]
     Active Substance: OXCARBAZEPINE
     Indication: PRODUCT USED FOR UNKNOWN INDICATION
  9. MIRTAZAPIN [Suspect]
     Active Substance: MIRTAZAPINE
     Indication: PRODUCT USED FOR UNKNOWN INDICATION
  10. CARBAMAZEPIN [Suspect]
     Active Substance: CARBAMAZEPINE
     Indication: PRODUCT USED FOR UNKNOWN INDICATION
     Dosage: UNK UNK, 2X/DAY (BID); 1?0?0.5
     Route: 048
  11. VALPRO BETA [Suspect]
     Active Substance: VALPROATE SODIUM
     Dosage: 500 MG, TOTAL
     Route: 048
     Dates: start: 20180629, end: 20180629
  12. OXCARBAZEPINE. [Suspect]
     Active Substance: OXCARBAZEPINE
     Dosage: 900 MG, TOTAL
     Route: 048
     Dates: start: 20180629, end: 20180629
  13. RISPERIDON [Suspect]
     Active Substance: RISPERIDONE
     Dosage: 2 MG DAILY
     Route: 048

REACTIONS (3)
  - Wrong patient received medication [Unknown]
  - Apathy [Unknown]
  - Bradycardia [Unknown]

NARRATIVE: CASE EVENT DATE: 20180629
